FAERS Safety Report 9383958 (Version 3)
Quarter: 2014Q1

REPORT INFORMATION
  Report Type: Spontaneous
  Country: US (occurrence: US)
  Receive Date: 20130705
  Receipt Date: 20140131
  Transmission Date: 20141002
  Serious: No
  Sender: FDA-Public Use
  Company Number: US-B.I. PHARMACEUTICALS,INC./RIDGEFIELD-2013-BI-18953BP

PATIENT
  Age: 77 Year
  Sex: Female
  Weight: 72 kg

DRUGS (14)
  1. MICARDIS [Suspect]
     Indication: LABILE HYPERTENSION
     Dosage: 40 MG
     Route: 048
     Dates: start: 201108, end: 201303
  2. MICARDIS [Suspect]
     Dosage: 80 MG
     Route: 048
     Dates: start: 201303, end: 201306
  3. MICARDIS [Suspect]
     Dosage: 40 MG
     Route: 048
     Dates: start: 201306
  4. MICARDIS [Suspect]
     Dosage: 40 MG
     Route: 048
     Dates: start: 2013, end: 2013
  5. AMLODIPINE BESYLATE [Suspect]
  6. ZIAC [Suspect]
     Dosage: STRENGTH: 0.5/6.25
     Route: 048
  7. I CAPS [Concomitant]
  8. VITAMIN D [Concomitant]
  9. MULTIVITAMIN [Concomitant]
  10. CALTRATE [Concomitant]
  11. VITAMIN C [Concomitant]
  12. LUTEIN [Concomitant]
  13. FISH OIL [Concomitant]
  14. LEVOXYL [Concomitant]
     Indication: HYPOTHYROIDISM
     Dosage: 50 MG
     Route: 048

REACTIONS (7)
  - Bradycardia [Unknown]
  - Rash vesicular [Recovered/Resolved]
  - Sinusitis [Recovered/Resolved]
  - Bronchitis [Recovered/Resolved]
  - Rash vesicular [Not Recovered/Not Resolved]
  - Blood pressure abnormal [Recovered/Resolved]
  - Product quality issue [Unknown]
